FAERS Safety Report 9525157 (Version 1)
Quarter: 2013Q1

REPORT INFORMATION
  Report Type: Spontaneous
  Country: US (occurrence: None)
  Receive Date: 20130313
  Receipt Date: 20130313
  Transmission Date: 20140127
  Serious: Yes (Other)
  Sender: FDA-Public Use
  Company Number: 1000031209

PATIENT
  Age: 27 Year
  Sex: Female

DRUGS (9)
  1. SAVELLA (MILNACIPRAN HYDROCHLORIDE) [Suspect]
     Indication: FIBROMYALGIA
  2. WELLBUTRIN (BUPROPION HYDROCHLORIDE) (BUPROPION HYDROCHLORIDE) [Concomitant]
  3. LANTUS (INSULIN GLARGINE) (INSULIN GLARGINE) [Concomitant]
  4. LAMICTAL (LAMOTRIGINE) (LAMOTRIGINE) [Concomitant]
  5. CLONAZEPAM (CLONAZEPAM) (CLONAZEPAM) [Concomitant]
  6. LISINOPRIL (LISINOPRIL) (LISINOPRIL) [Concomitant]
  7. GABAPENTIN (GABAPENTIN) (GABAPENTIN) [Concomitant]
  8. TRAZODONE (TRAZODONE) (TRAZODONE) [Concomitant]
  9. AMLODIPINE (AMLODIPINE) (AMLODIPINE) [Concomitant]

REACTIONS (4)
  - Hypoaesthesia [None]
  - Gait disturbance [None]
  - Tremor [None]
  - Ataxia [None]
